FAERS Safety Report 5990087-7 (Version None)
Quarter: 2008Q4

REPORT INFORMATION
  Report Type: 
  Country: None (occurrence: None)
  Receive Date: 20081211
  Receipt Date: 20081209
  Transmission Date: 20090506
  Serious: Yes (Death, Hospitalization)
  Sender: FDA-Public Use
  Company Number: FR-BRISTOL-MYERS SQUIBB COMPANY-14437032

PATIENT
  Age: 44 Year
  Sex: Male

DRUGS (2)
  1. ABILIFY [Suspect]
     Dates: end: 20081119
  2. LEPONEX [Suspect]

REACTIONS (1)
  - DEATH [None]
